FAERS Safety Report 5791075-6 (Version None)
Quarter: 2008Q2

REPORT INFORMATION
  Report Type: 
  Country: None (occurrence: None)
  Receive Date: 20080626
  Receipt Date: 20080402
  Transmission Date: 20081010
  Serious: No
  Sender: FDA-Public Use
  Company Number: A0712120A

PATIENT
  Sex: Female

DRUGS (1)
  1. ALLI [Suspect]
     Indication: DRUG USE FOR UNKNOWN INDICATION

REACTIONS (10)
  - COUGH [None]
  - NASOPHARYNGITIS [None]
  - OEDEMA MOUTH [None]
  - ORAL CANDIDIASIS [None]
  - ORAL PAIN [None]
  - SNEEZING [None]
  - STOMATITIS [None]
  - TENSION HEADACHE [None]
  - WEIGHT INCREASED [None]
  - WISDOM TEETH REMOVAL [None]
